FAERS Safety Report 5648091-4 (Version None)
Quarter: 2008Q1

REPORT INFORMATION
  Report Type: 
  Country: None (occurrence: None)
  Receive Date: 20080229
  Receipt Date: 20080229
  Transmission Date: 20080703
  Serious: Yes (Hospitalization)
  Sender: FDA-Public Use
  Company Number: None

PATIENT
  Age: 71 Year

DRUGS (1)
  1. METHOTREXATE [Suspect]
     Indication: RHEUMATOID ARTHRITIS
     Dosage: 12.5 MG WEEKLY PO
     Route: 048
     Dates: start: 20070201, end: 20070906

REACTIONS (1)
  - LUPUS-LIKE SYNDROME [None]
